FAERS Safety Report 8981147 (Version 2)
Quarter: 2013Q1

REPORT INFORMATION
  Report Type: Report from Study
  Country: US (occurrence: US)
  Receive Date: 20121221
  Receipt Date: 20130107
  Transmission Date: 20140127
  Serious: Yes (Congenital Anomaly)
  Sender: FDA-Public Use
  Company Number: US-VIIV HEALTHCARE LIMITED-A1005463B

PATIENT
  Age: 1 Day
  Sex: Female
  Weight: 2.4 kg

DRUGS (6)
  1. COMBIVIR [Suspect]
     Indication: ANTIVIRAL TREATMENT
     Dosage: 2TAB PER DAY
     Route: 064
     Dates: start: 20120924
  2. RETROVIR [Suspect]
     Indication: ANTIVIRAL TREATMENT
     Route: 064
     Dates: start: 20121121, end: 20121121
  3. KALETRA [Suspect]
     Indication: ANTIVIRAL TREATMENT
     Dosage: 4TAB PER DAY
     Route: 064
     Dates: start: 20120924
  4. ISENTRESS [Suspect]
     Indication: ANTIVIRAL TREATMENT
     Dosage: 800MG PER DAY
     Route: 064
     Dates: start: 20120924
  5. TRIMETHOPRIM + SULFAMETHOXAZOLE [Concomitant]
     Indication: PRODUCT USED FOR UNKNOWN INDICATION
     Route: 064
  6. IVIG [Concomitant]
     Indication: CYTOMEGALOVIRUS INFECTION
     Route: 064

REACTIONS (4)
  - Atrial septal defect [Unknown]
  - Cardiac murmur [Unknown]
  - Trisomy 21 [Unknown]
  - Foetal exposure during pregnancy [Unknown]
